FAERS Safety Report 9446394 (Version 2)
Quarter: 2014Q1

REPORT INFORMATION
  Report Type: Spontaneous
  Country: US (occurrence: US)
  Receive Date: 20130807
  Receipt Date: 20140304
  Transmission Date: 20141002
  Serious: No
  Sender: FDA-Public Use
  Company Number: US-AMGEN-USASP2013021705

PATIENT
  Age: 65 Year
  Sex: Female
  Weight: 80.73 kg

DRUGS (26)
  1. ENBREL [Suspect]
     Indication: PRODUCT USED FOR UNKNOWN INDICATION
     Dosage: UNK
     Route: 065
  2. XELJANZ [Suspect]
     Indication: PRODUCT USED FOR UNKNOWN INDICATION
     Dosage: 5 MG, BID
     Route: 048
  3. AMLODIPINE [Concomitant]
     Dosage: 5 MG, UNK
  4. LEUCOVORIN CA [Concomitant]
     Dosage: 10 MG, UNK
  5. METHOTREXATE [Concomitant]
     Dosage: 2.5 MG, UNK
  6. SIMVASTATIN [Concomitant]
     Dosage: 20 MG, UNK
  7. PRILOSEC                           /00661201/ [Concomitant]
     Dosage: 20 MG, QD
  8. VITAMIN D                          /00107901/ [Concomitant]
     Dosage: 1000 UNIT, UNK
  9. CALCIUM 600 + D [Concomitant]
     Dosage: UNK
  10. ASPIRIN [Concomitant]
     Dosage: 81 MG, UNK
  11. FOLIC ACID [Concomitant]
  12. ALEVE [Concomitant]
     Dosage: UNK
  13. TYLENOL                            /00020001/ [Concomitant]
     Dosage: 500 UNK, UNK
  14. FISH OIL [Concomitant]
     Dosage: 100 UNK, BID
  15. ENALAPRIL [Concomitant]
     Dosage: 10 MG, QD
  16. SUDAFED                            /00076302/ [Concomitant]
     Dosage: 30 G, PRN
  17. HUMIRA [Concomitant]
     Dosage: 40 UNK, UNK
  18. ASA [Concomitant]
     Dosage: 325 UNK, TID
  19. PARAFFIN [Concomitant]
     Dosage: UNK
  20. MULTIVITAMINS, PLAIN [Concomitant]
     Dosage: UNK UNK, QD
  21. DEXAMETHASONE [Concomitant]
     Dosage: UNK
  22. DILTIAZEM [Concomitant]
     Dosage: 240 G, UNK
  23. SEAFLOX [Concomitant]
     Dosage: UNK
  24. TICOVAC [Concomitant]
     Dosage: 5 G, QWK
  25. FENTANYL [Concomitant]
     Dosage: 200 G, UNK
  26. BIOTIN [Concomitant]
     Dosage: UNK

REACTIONS (1)
  - Drug hypersensitivity [Not Recovered/Not Resolved]
